FAERS Safety Report 16908189 (Version 2)
Quarter: 2019Q4

REPORT INFORMATION
  Report Type: Spontaneous
  Country: US (occurrence: US)
  Receive Date: 20191011
  Receipt Date: 20191021
  Transmission Date: 20200122
  Serious: Yes (Hospitalization, Other)
  Sender: FDA-Public Use
  Company Number: US-PFIZER INC-2019433699

PATIENT
  Age: 76 Year
  Sex: Male

DRUGS (3)
  1. PYRIDOSTIGMINE [Concomitant]
     Active Substance: PYRIDOSTIGMINE
     Dosage: UNK (INCREASED DOSE OF PYRIDOSTIGMINE)
  2. GABAPENTIN. [Suspect]
     Active Substance: GABAPENTIN
     Indication: NEURALGIA
     Dosage: UNK
  3. PYRIDOSTIGMINE [Concomitant]
     Active Substance: PYRIDOSTIGMINE
     Indication: MYASTHENIA GRAVIS
     Dosage: UNK

REACTIONS (3)
  - Myasthenia gravis [Recovered/Resolved]
  - Myasthenia gravis crisis [Recovered/Resolved]
  - Respiratory distress [Recovered/Resolved]
